FAERS Safety Report 11698325 (Version 1)
Quarter: 2015Q4

REPORT INFORMATION
  Report Type: Report from Study
  Country: JP (occurrence: JP)
  Receive Date: 20151104
  Receipt Date: 20151104
  Transmission Date: 20160304
  Serious: Yes (Other)
  Sender: FDA-Public Use
  Company Number: JP-GLAXOSMITHKLINE-JP2015GSK157721

PATIENT

DRUGS (6)
  1. FLUDARABINE [Suspect]
     Active Substance: FLUDARABINE PHOSPHATE
     Indication: PLASMA CELL MYELOMA
     Dosage: 25 MG/M2, CYC
     Route: 042
  2. METHOTREXATE [Suspect]
     Active Substance: METHOTREXATE
     Dosage: 10 MG/M2, UNK
  3. METHOTREXATE [Suspect]
     Active Substance: METHOTREXATE
     Indication: PROPHYLAXIS
     Dosage: 15 MG/M2, UNK
  4. MELPHALAN [Suspect]
     Active Substance: MELPHALAN
     Indication: PLASMA CELL MYELOMA
     Dosage: 70 MG/M2, CYC
     Route: 042
  5. CYCLOSPORINE A [Suspect]
     Active Substance: CYCLOSPORINE
     Indication: PLASMA CELL MYELOMA
     Dosage: UNK
  6. TACROLIMUS. [Suspect]
     Active Substance: TACROLIMUS
     Indication: PLASMA CELL MYELOMA
     Dosage: UNK

REACTIONS (1)
  - Meningitis bacterial [Unknown]
